FAERS Safety Report 12710147 (Version 4)
Quarter: 2016Q4

REPORT INFORMATION
  Report Type: Spontaneous
  Country: FR (occurrence: FR)
  Receive Date: 20160902
  Receipt Date: 20161213
  Transmission Date: 20170207
  Serious: Yes (Other)
  Sender: FDA-Public Use
  Company Number: FR-009507513-1608FRA014515

PATIENT
  Age: 27 Year
  Sex: Female
  Weight: 78 kg

DRUGS (1)
  1. IMPLANON [Suspect]
     Active Substance: ETONOGESTREL
     Dosage: UNK
     Route: 059
     Dates: start: 2008

REACTIONS (9)
  - Migration of implanted drug [Not Recovered/Not Resolved]
  - Device deployment issue [Unknown]
  - Weight increased [Unknown]
  - Amenorrhoea [Unknown]
  - Incorrect drug administration duration [Unknown]
  - Fibroadenoma of breast [Unknown]
  - Menstrual disorder [Unknown]
  - Complication associated with device [Not Recovered/Not Resolved]
  - Implant site scar [Unknown]

NARRATIVE: CASE EVENT DATE: 200808
